FAERS Safety Report 8768774 (Version 1)
Quarter: 2012Q4

REPORT INFORMATION
  Report Type: 
  Country: US (occurrence: US)
  Receive Date: 20120906
  Receipt Date: 20120906
  Transmission Date: 20130627
  Serious: Yes (Other)
  Sender: FDA-Public Use
  Company Number: CHPA2012US019210

PATIENT
  Sex: Male

DRUGS (2)
  1. VOLTAREN GEL [Suspect]
     Indication: PROCEDURAL PAIN
     Dosage: Unk, once or twice
     Route: 065
     Dates: start: 201102
  2. DRUG THERAPY NOS [Concomitant]

REACTIONS (3)
  - Meniscus injury [Recovered/Resolved]
  - Off label use [Unknown]
  - Wrong technique in drug usage process [Unknown]
